FAERS Safety Report 8481661-7 (Version None)
Quarter: 2012Q2

REPORT INFORMATION
  Report Type: 
  Country: None (occurrence: None)
  Receive Date: 20120402
  Receipt Date: 20100903
  Transmission Date: 20120825
  Serious: Yes (Other)
  Sender: FDA-Public Use
  Company Number: PHHY2010US60480

PATIENT
  Age: 76 Year
  Sex: Female

DRUGS (7)
  1. SIMVASTATIN [Concomitant]
  2. DIOVAN HCT [Suspect]
  3. LEVOTHYROXINE SODIUM [Concomitant]
  4. EXFORGE HCT [Suspect]
     Dosage: TABLET (320/25 MG); TABLET (160/25 MG)
  5. METOPROLOL [Concomitant]
  6. HUMULIN (INSULIN HUMAN, INSULIN ISOPHANE, HUMAN BIOSYNTHETIC) [Concomitant]
  7. ISOSORBIDE [Concomitant]

REACTIONS (9)
  - THROAT IRRITATION [None]
  - BLUE TOE SYNDROME [None]
  - HYPERTENSION [None]
  - OEDEMA PERIPHERAL [None]
  - HYPOTENSION [None]
  - COUGH [None]
  - JOINT SWELLING [None]
  - VEIN DISORDER [None]
  - APHONIA [None]
